FAERS Safety Report 19740428 (Version 1)
Quarter: 2021Q3

REPORT INFORMATION
  Report Type: Spontaneous
  Country: CA (occurrence: CA)
  Receive Date: 20210824
  Receipt Date: 20210824
  Transmission Date: 20211014
  Serious: Yes (Hospitalization)
  Sender: FDA-Public Use
  Company Number: CA-009507513-2108CAN005856

PATIENT
  Age: 75 Year
  Sex: Male

DRUGS (10)
  1. RIVA?METFORMIN [Concomitant]
  2. TEVA NAPROXEN EC [Concomitant]
     Active Substance: NAPROXEN
  3. SALBUTAMOL HFA [Concomitant]
     Active Substance: ALBUTEROL
  4. DOVOBET [Concomitant]
     Active Substance: BETAMETHASONE\CALCIPOTRIENE
  5. JAMP MAGNESIUM [Concomitant]
  6. SYMBICORT [Concomitant]
     Active Substance: BUDESONIDE\FORMOTEROL FUMARATE DIHYDRATE
  7. KEYTRUDA [Suspect]
     Active Substance: PEMBROLIZUMAB
     Indication: LUNG SQUAMOUS CELL CARCINOMA METASTATIC
     Dosage: 2 MILLIGRAM/KILOGRAM, 1 EVERY 21 DAYS
     Route: 042
  8. SPIRIVA [Concomitant]
     Active Substance: TIOTROPIUM BROMIDE MONOHYDRATE
     Route: 065
  9. FUSIDIC ACID [Concomitant]
     Active Substance: FUSIDIC ACID
  10. TRIADERM [Concomitant]

REACTIONS (4)
  - Extremity necrosis [Not Recovered/Not Resolved]
  - Skin plaque [Not Recovered/Not Resolved]
  - Superinfection [Not Recovered/Not Resolved]
  - Rash [Not Recovered/Not Resolved]
